FAERS Safety Report 7462465-0 (Version None)
Quarter: 2011Q2

REPORT INFORMATION
  Report Type: 
  Country: None (occurrence: None)
  Receive Date: 20110506
  Receipt Date: 20110107
  Transmission Date: 20111010
  Serious: Yes (Other)
  Sender: FDA-Public Use
  Company Number: US-BAYER-201025436NA

PATIENT
  Sex: Male
  Weight: 77.098 kg

DRUGS (64)
  1. PROHANCE [Suspect]
     Indication: IMAGING PROCEDURE
  2. ZITHROMAX [Concomitant]
  3. VICOPROFEN [Concomitant]
  4. ZAROXOLYN [Concomitant]
  5. GADOLINIUM IN UNSPECIFIED DRUG [Suspect]
     Dosage: UNK
     Dates: start: 20040427, end: 20040427
  6. OPTIMARK [Suspect]
     Indication: IMAGING PROCEDURE
     Dates: start: 20030206, end: 20030206
  7. CELLCEPT [Concomitant]
     Dosage: 500 MG, QID
  8. PREDNISONE [Concomitant]
     Dosage: 14 MG, QD
  9. PROTONIX [Concomitant]
     Dosage: 40 MG, QD
  10. ERGOCALCIFEROL [Concomitant]
     Dosage: 50000 U, OW
  11. AMLODIPINE BESYLATE [Concomitant]
  12. TENORMIN [Concomitant]
  13. VANCOMYCIN [Concomitant]
     Route: 042
  14. ROCEPHIN [Concomitant]
  15. DARVOCET-N 50 [Concomitant]
  16. OXYCODONE [Concomitant]
  17. ACETAMINOPHEN [Concomitant]
  18. PEPCID [Concomitant]
  19. NASALIDE [Concomitant]
     Route: 045
  20. MAGNEVIST [Suspect]
  21. MULTIHANCE [Suspect]
     Indication: IMAGING PROCEDURE
  22. COUMADIN [Concomitant]
     Dosage: 4 MG, QD
  23. NORVASC [Concomitant]
     Dosage: 5 MG DAILY
     Route: 048
     Dates: start: 19970101
  24. RENAGEL [Concomitant]
     Dosage: 800 MG (4 TABS)
  25. CARDIAZEM [Concomitant]
     Dosage: UNK
     Dates: start: 20040608
  26. ZYRTEC [Concomitant]
  27. RESTORIL [Concomitant]
  28. STOOL SOFTENER [Concomitant]
  29. VITAMIN K TAB [Concomitant]
  30. GENTAMICIN [Concomitant]
  31. MAGNEVIST [Suspect]
     Indication: ANGIOGRAM
     Dosage: UNK
     Dates: start: 20070427, end: 20070427
  32. OMNISCAN [Suspect]
     Indication: IMAGING PROCEDURE
  33. EPOGEN [Concomitant]
     Dosage: UNK
  34. PRILOSEC [Concomitant]
  35. ISONIAZID [Concomitant]
  36. PERCOCET [Concomitant]
  37. LAXATIVES [Concomitant]
  38. DIADEX [Concomitant]
  39. ASPIRIN [Concomitant]
  40. PROZAC [Concomitant]
  41. PHOSLO [Concomitant]
  42. NEUTRA-PHOS [Concomitant]
     Dosage: 1 DF, QD
  43. HEPARIN [Concomitant]
  44. VALIUM [Concomitant]
  45. MAGNEVIST [Suspect]
     Indication: IMAGING PROCEDURE
     Dosage: UNK
     Dates: start: 20040427, end: 20040427
  46. GADOLINIUM IN UNSPECIFIED DRUG [Suspect]
     Dosage: UNK
     Dates: start: 20040601, end: 20040601
  47. RENAGEL [Concomitant]
     Dosage: UNK
     Dates: start: 20040608
  48. ZOCOR [Concomitant]
     Dosage: 40 MG DAILY
     Dates: start: 20030101
  49. OXYCONTIN [Concomitant]
  50. AMPHOJEL [ALUMINIUM OXIDE] [Concomitant]
     Dosage: 600 MG
  51. OPTIMARK [Suspect]
     Dates: start: 20030724, end: 20030724
  52. PROGRAF [Concomitant]
     Dosage: 1.5 MG, BID
  53. BACTRIM [Concomitant]
     Dosage: UNK UNK, QD
  54. NORVASC [Concomitant]
     Dosage: 2.5 MG, QD
  55. MANNITOL [Concomitant]
  56. LOVENOX [Concomitant]
     Dosage: 30 MG Q 12 H
     Route: 058
  57. OSCAL [Concomitant]
     Dosage: 1500 MG DAILY
  58. LASIX [Concomitant]
     Dosage: UNK UNK, PRN
  59. COZAAR [Concomitant]
     Dosage: 100 MG DAILY
     Route: 048
     Dates: start: 19970101, end: 20030101
  60. CALCIUM CARBONATE [Concomitant]
  61. FLEXERIL [Concomitant]
  62. VITAMINS [Concomitant]
  63. OPTIMARK [Suspect]
     Dates: start: 20030329, end: 20030329
  64. VIAGRA [Concomitant]

REACTIONS (30)
  - NEPHROGENIC SYSTEMIC FIBROSIS [None]
  - SKIN HYPERTROPHY [None]
  - JOINT RANGE OF MOTION DECREASED [None]
  - PARAESTHESIA [None]
  - HYPOAESTHESIA [None]
  - ASTHENIA [None]
  - OEDEMA PERIPHERAL [None]
  - PEAU D'ORANGE [None]
  - SKIN FIBROSIS [None]
  - PAIN [None]
  - EXTREMITY CONTRACTURE [None]
  - SCAR [None]
  - SKIN LESION [None]
  - SKIN MASS [None]
  - SKIN INDURATION [None]
  - MUSCULOSKELETAL PAIN [None]
  - JOINT CONTRACTURE [None]
  - DEFORMITY [None]
  - SKIN TIGHTNESS [None]
  - SKIN BURNING SENSATION [None]
  - RASH [None]
  - MUSCULAR WEAKNESS [None]
  - GENERAL PHYSICAL HEALTH DETERIORATION [None]
  - ARTHRALGIA [None]
  - SKIN HYPERPIGMENTATION [None]
  - SKIN DISCOLOURATION [None]
  - PRURITUS [None]
  - RASH PAPULAR [None]
  - SKIN DISORDER [None]
  - DERMATITIS [None]
